FAERS Safety Report 20173070 (Version 1)
Quarter: 2021Q4

REPORT INFORMATION
  Report Type: Spontaneous
  Country: AT (occurrence: AT)
  Receive Date: 20211211
  Receipt Date: 20211211
  Transmission Date: 20220303
  Serious: Yes (Other)
  Sender: FDA-Public Use
  Company Number: AT-NOVARTISPH-NVSC2021AT275286

PATIENT
  Age: 49 Year
  Sex: Female

DRUGS (2)
  1. ELTROMBOPAG OLAMINE [Suspect]
     Active Substance: ELTROMBOPAG OLAMINE
     Indication: Immune thrombocytopenia
     Dosage: 100 MG (75 PLUS 25 MG)
     Route: 065
  2. CORTISONE [Concomitant]
     Active Substance: CORTISONE
     Indication: Immune thrombocytopenia
     Dosage: UNK
     Route: 065

REACTIONS (4)
  - Thrombocytopenia [Unknown]
  - Respiratory tract infection [Unknown]
  - Disease recurrence [Unknown]
  - Incorrect dose administered [Unknown]
